FAERS Safety Report 18199892 (Version 2)
Quarter: 2020Q4

REPORT INFORMATION
  Report Type: Report from Study
  Country: US (occurrence: US)
  Receive Date: 20200827
  Receipt Date: 20201023
  Transmission Date: 20210113
  Serious: Yes (Other)
  Sender: FDA-Public Use
  Company Number: US-BIOGEN-2020BI00914539

PATIENT
  Age: 32 Year
  Sex: Female

DRUGS (1)
  1. TYSABRI [Suspect]
     Active Substance: NATALIZUMAB
     Indication: MULTIPLE SCLEROSIS
     Dosage: INFUSE OVER ONE HOUR
     Route: 042
     Dates: start: 20200701

REACTIONS (7)
  - Seizure [Recovered/Resolved with Sequelae]
  - Posture abnormal [Unknown]
  - Visual impairment [Unknown]
  - Pallor [Unknown]
  - Eye movement disorder [Unknown]
  - Extremity contracture [Unknown]
  - Dizziness [Unknown]

NARRATIVE: CASE EVENT DATE: 20200818
